FAERS Safety Report 10441197 (Version 1)
Quarter: 2014Q3

REPORT INFORMATION
  Report Type: Spontaneous
  Country: US (occurrence: US)
  Receive Date: 20140909
  Receipt Date: 20140909
  Transmission Date: 20150326
  Serious: No
  Sender: FDA-Public Use
  Company Number: US-GLAXOSMITHKLINE-A1062699A

PATIENT
  Age: 6 Year
  Sex: Female

DRUGS (3)
  1. LAMICTAL [Suspect]
     Active Substance: LAMOTRIGINE
     Indication: CONVULSION
     Dosage: 200MG PER DAY
     Route: 048
     Dates: start: 201310
  2. VITAMIN [Concomitant]
     Active Substance: VITAMINS
  3. LAMICTAL [Suspect]
     Active Substance: LAMOTRIGINE
     Indication: CONVULSION
     Route: 048
     Dates: start: 2006

REACTIONS (9)
  - Abdominal discomfort [Recovering/Resolving]
  - Off label use [Unknown]
  - Decreased appetite [Unknown]
  - Malaise [Unknown]
  - Adverse event [Unknown]
  - Weight decreased [Unknown]
  - Drug administration error [Unknown]
  - Oropharyngeal pain [Unknown]
  - Nodule [Unknown]

NARRATIVE: CASE EVENT DATE: 201302
